FAERS Safety Report 4873588-4 (Version None)
Quarter: 2006Q1

REPORT INFORMATION
  Report Type: 
  Country: None (occurrence: None)
  Receive Date: 20060105
  Receipt Date: 20051227
  Transmission Date: 20060701
  Serious: Yes (Hospitalization)
  Sender: FDA-Public Use
  Company Number: SE-MERCK-0512SWE00031

PATIENT
  Age: 7 Year
  Sex: Male

DRUGS (2)
  1. AMINOHIPPURATE SODIUM [Suspect]
     Indication: INULIN RENAL CLEARANCE
     Route: 051
     Dates: start: 20051028, end: 20051028
  2. INULIN [Suspect]
     Indication: INULIN RENAL CLEARANCE
     Route: 051
     Dates: start: 20051228, end: 20051228

REACTIONS (1)
  - ANAPHYLACTIC REACTION [None]
